FAERS Safety Report 22636792 (Version 1)
Quarter: 2023Q2

REPORT INFORMATION
  Report Type: Spontaneous
  Country: RO (occurrence: None)
  Receive Date: 20230626
  Receipt Date: 20230626
  Transmission Date: 20230721
  Serious: Yes (Hospitalization)
  Sender: FDA-Public Use
  Company Number: RO-MDD US Operations-MDD202306-002395

PATIENT
  Age: 67 Year
  Sex: Female

DRUGS (7)
  1. APOMORPHINE HYDROCHLORIDE [Suspect]
     Active Substance: APOMORPHINE HYDROCHLORIDE
     Indication: Parkinson^s disease
     Route: 058
     Dates: start: 20230608
  2. GLUCOPHAGE [Concomitant]
     Active Substance: METFORMIN HYDROCHLORIDE
     Dosage: NOT PROVIDED
  3. IRBESARTAN [Concomitant]
     Active Substance: IRBESARTAN
     Dosage: NOT PROVIDED
  4. CARBIDOPA\LEVODOPA [Concomitant]
     Active Substance: CARBIDOPA\LEVODOPA
     Dosage: NOT PROVIDED
  5. INDAPAMIDE [Concomitant]
     Active Substance: INDAPAMIDE
     Dosage: NOT PROVIDED
  6. CORIOL [Concomitant]
     Dosage: NOT PROVIDED
  7. ASPIRIN [Concomitant]
     Active Substance: ASPIRIN
     Dosage: NOT PROVIDED

REACTIONS (3)
  - Cold sweat [Unknown]
  - Asthenia [Unknown]
  - Hyperhidrosis [Unknown]

NARRATIVE: CASE EVENT DATE: 20230608
